FAERS Safety Report 21273937 (Version 5)
Quarter: 2022Q3

REPORT INFORMATION
  Report Type: Spontaneous
  Country: US (occurrence: US)
  Receive Date: 20220831
  Receipt Date: 20220916
  Transmission Date: 20221026
  Serious: Yes (Other)
  Sender: FDA-Public Use
  Company Number: US-PFIZER INC-PV202200053470

PATIENT
  Age: 72 Year
  Sex: Female
  Weight: 79.38 kg

DRUGS (6)
  1. SOLU-MEDROL [Suspect]
     Active Substance: METHYLPREDNISOLONE SODIUM SUCCINATE
     Indication: Myelin oligodendrocyte glycoprotein antibody-associated disease
     Dosage: 1000 MG (INFUSED ONE TIME)
     Dates: start: 20220726
  2. SOLU-MEDROL [Suspect]
     Active Substance: METHYLPREDNISOLONE SODIUM SUCCINATE
     Dosage: 100 MG
     Dates: start: 20220809
  3. OCREVUS [Concomitant]
     Active Substance: OCRELIZUMAB
     Indication: Myelin oligodendrocyte glycoprotein antibody-associated disease
     Dosage: UNK
  4. OCREVUS [Concomitant]
     Active Substance: OCRELIZUMAB
     Dosage: 300 MG (HALF OF THE FULL INFUSION )
     Dates: start: 20220726
  5. RITUXAN [Concomitant]
     Active Substance: RITUXIMAB
     Dosage: UNK
  6. LOSARTAN [Concomitant]
     Active Substance: LOSARTAN
     Indication: Blood pressure abnormal
     Dosage: 100 MG, DAILY
     Route: 048

REACTIONS (22)
  - Overdose [Unknown]
  - Intracranial pressure increased [Unknown]
  - Off label use [Unknown]
  - Insomnia [Recovered/Resolved]
  - Cognitive disorder [Recovered/Resolved]
  - Flushing [Recovered/Resolved]
  - Feeling hot [Recovered/Resolved]
  - Feeling abnormal [Recovered/Resolved]
  - Road traffic accident [Recovered/Resolved]
  - Balance disorder [Unknown]
  - Cerebral disorder [Unknown]
  - Asthenia [Unknown]
  - Dizziness [Unknown]
  - Erythema [Unknown]
  - Petechiae [Unknown]
  - Depression [Unknown]
  - Affect lability [Unknown]
  - Headache [Unknown]
  - Gait disturbance [Unknown]
  - Crying [Unknown]
  - Head discomfort [Unknown]
  - Capillary fragility [Unknown]

NARRATIVE: CASE EVENT DATE: 20220101
